FAERS Safety Report 12627733 (Version 1)
Quarter: 2016Q3

REPORT INFORMATION
  Report Type: Spontaneous
  Country: US (occurrence: US)
  Receive Date: 20160805
  Receipt Date: 20160805
  Transmission Date: 20161109
  Serious: No
  Sender: FDA-Public Use
  Company Number: US-ASTRAZENECA-2016SE76504

PATIENT
  Sex: Female

DRUGS (1)
  1. FASLODEX [Suspect]
     Active Substance: FULVESTRANT
     Indication: BREAST CANCER METASTATIC
     Dosage: TWO 250 MG INJECTIONS, IN EACH SIDE OF BUTT
     Route: 030

REACTIONS (5)
  - Throat irritation [Unknown]
  - Upper-airway cough syndrome [Unknown]
  - Cough [Unknown]
  - Dizziness [Unknown]
  - Condition aggravated [Unknown]
